FAERS Safety Report 5158481-4 (Version None)
Quarter: 2006Q4

REPORT INFORMATION
  Report Type: 
  Country: None (occurrence: None)
  Receive Date: 20061116
  Receipt Date: 20060915
  Transmission Date: 20070319
  Serious: Yes (Hospitalization, Other)
  Sender: FDA-Public Use
  Company Number: 2004-04-0760

PATIENT
  Age: 68 Year
  Sex: Male

DRUGS (10)
  1. BETAMETHASONE [Suspect]
     Indication: CHRONIC LYMPHOCYTIC LEUKAEMIA
     Dosage: QD; PO, SEE IMAGE
     Route: 048
     Dates: start: 19990401, end: 19990901
  2. BETAMETHASONE [Suspect]
     Indication: CHRONIC LYMPHOCYTIC LEUKAEMIA
     Dosage: QD; PO, SEE IMAGE
     Route: 048
     Dates: end: 20020201
  3. BETAMETHASONE [Suspect]
     Indication: CHRONIC LYMPHOCYTIC LEUKAEMIA
     Dosage: QD; PO, SEE IMAGE
     Route: 048
     Dates: end: 20040201
  4. BETAMETHASONE [Suspect]
     Indication: CHRONIC LYMPHOCYTIC LEUKAEMIA
     Dosage: QD; PO, SEE IMAGE
     Route: 048
     Dates: start: 19990401
  5. RENITEC (CON) [Concomitant]
  6. OMEPRAZOLE [Concomitant]
  7. KALEORID (CON) [Concomitant]
  8. SURBRONC (CON) [Concomitant]
  9. ANTIBIOTIC (CON) [Concomitant]
  10. CHLORAMBUCIL (CON) [Concomitant]

REACTIONS (15)
  - ABSCESS [None]
  - ASTHENIA [None]
  - COLON CANCER [None]
  - DRUG WITHDRAWAL SYNDROME [None]
  - GASTROINTESTINAL DISORDER [None]
  - INTERVERTEBRAL DISC PROTRUSION [None]
  - LUNG INFECTION [None]
  - MALAISE [None]
  - OEDEMA PERIPHERAL [None]
  - OSTEOPENIA [None]
  - OSTEOPOROSIS [None]
  - PAIN [None]
  - PAIN IN EXTREMITY [None]
  - PHLEBITIS [None]
  - WEIGHT INCREASED [None]
